FAERS Safety Report 12657994 (Version 1)
Quarter: 2016Q3

REPORT INFORMATION
  Report Type: Spontaneous
  Country: US (occurrence: US)
  Receive Date: 20160816
  Receipt Date: 20160816
  Transmission Date: 20161109
  Serious: Yes (Other)
  Sender: FDA-Public Use
  Company Number: US-CELGENEUS-USA-2016082830

PATIENT
  Age: 67 Year
  Sex: Female
  Weight: 87.62 kg

DRUGS (21)
  1. DEXAMETHASONE. [Concomitant]
     Active Substance: DEXAMETHASONE
     Indication: ADJUVANT THERAPY
     Route: 065
  2. MESTINON [Concomitant]
     Active Substance: PYRIDOSTIGMINE BROMIDE
     Indication: MYASTHENIA GRAVIS
     Route: 065
  3. RESTASIS [Concomitant]
     Active Substance: CYCLOSPORINE
     Indication: DRY EYE
     Route: 065
  4. AMBIEN [Concomitant]
     Active Substance: ZOLPIDEM TARTRATE
     Indication: INSOMNIA
     Dosage: 81 MILLIGRAM
     Route: 065
  5. PROTONIX [Concomitant]
     Active Substance: PANTOPRAZOLE SODIUM
     Indication: GASTROOESOPHAGEAL REFLUX DISEASE
     Route: 065
  6. METHOTREXATE. [Concomitant]
     Active Substance: METHOTREXATE
     Indication: ARTHRITIS
     Dosage: 4 MILLIGRAM
     Route: 065
  7. PRAVASTATIN. [Concomitant]
     Active Substance: PRAVASTATIN
     Indication: HYPERLIPIDAEMIA
     Dosage: 15 MILLIGRAM
     Route: 065
  8. OMEGA 3 [Concomitant]
     Active Substance: OMEGA-3 FATTY ACIDS
     Indication: VITAMIN SUPPLEMENTATION
     Dosage: 200 MILLIGRAM
     Route: 065
  9. REVLIMID [Suspect]
     Active Substance: LENALIDOMIDE
     Indication: PLASMA CELL MYELOMA
     Dosage: 25 MILLIGRAM
     Route: 048
     Dates: start: 201606
  10. GABAPENTIN. [Concomitant]
     Active Substance: GABAPENTIN
     Indication: MYASTHENIA GRAVIS
     Route: 065
  11. TIZANIDINE. [Concomitant]
     Active Substance: TIZANIDINE
     Indication: OSTEOPOROSIS
     Dosage: 800 MILLIGRAM
     Route: 065
  12. ALLEGRA [Concomitant]
     Active Substance: FEXOFENADINE HYDROCHLORIDE
     Indication: MULTIPLE ALLERGIES
     Dosage: 5 MILLIGRAM
     Route: 065
  13. LEVOTHYROXINE. [Concomitant]
     Active Substance: LEVOTHYROXINE
     Indication: HYPOTHYROIDISM
     Route: 065
  14. ACYCLOVIR. [Concomitant]
     Active Substance: ACYCLOVIR
     Indication: ANTIVIRAL PROPHYLAXIS
     Route: 065
  15. OXYCODONE [Concomitant]
     Active Substance: OXYCODONE
     Indication: PAIN
     Dosage: 60 MILLIGRAM
     Route: 065
  16. LIDODERM [Concomitant]
     Active Substance: LIDOCAINE
     Indication: PAIN
     Dosage: 300 MILLIGRAM
     Route: 065
  17. ALBUTEROL. [Concomitant]
     Active Substance: ALBUTEROL
     Indication: ASTHMA
     Dosage: 6.25 MILLIGRAM
     Route: 055
  18. ASPIRIN. [Concomitant]
     Active Substance: ASPIRIN
     Indication: CARDIAC DISORDER
     Dosage: 40 MILLIGRAM
     Route: 065
  19. COREG [Concomitant]
     Active Substance: CARVEDILOL
     Indication: HYPERTENSION
     Route: 065
  20. FLUCONAZOLE. [Concomitant]
     Active Substance: FLUCONAZOLE
     Indication: ASTHMA
     Dosage: 12 MILLIGRAM
     Route: 065
  21. FOLIC ACID. [Concomitant]
     Active Substance: FOLIC ACID
     Indication: VITAMIN SUPPLEMENTATION
     Dosage: 10 MILLIGRAM
     Route: 065

REACTIONS (1)
  - Diarrhoea [Recovered/Resolved]

NARRATIVE: CASE EVENT DATE: 20160805
